FAERS Safety Report 23034985 (Version 1)
Quarter: 2023Q4

REPORT INFORMATION
  Report Type: Spontaneous
  Country: US (occurrence: US)
  Receive Date: 20231005
  Receipt Date: 20231005
  Transmission Date: 20240110
  Serious: Yes (Other)
  Sender: FDA-Public Use
  Company Number: US-ALXN-A202002011

PATIENT
  Age: 6 Month
  Sex: Male

DRUGS (2)
  1. KANUMA [Suspect]
     Active Substance: SEBELIPASE ALFA
     Indication: Lysosomal acid lipase deficiency
     Dosage: 1MG/KG, Q2W
     Route: 065
  2. KANUMA [Suspect]
     Active Substance: SEBELIPASE ALFA
     Dosage: 3MG/KG, Q2W
     Route: 065

REACTIONS (3)
  - Epstein-Barr viraemia [Recovering/Resolving]
  - Hypertransaminasaemia [Recovering/Resolving]
  - Liver function test increased [Unknown]
